FAERS Safety Report 19455741 (Version 1)
Quarter: 2021Q2

REPORT INFORMATION
  Report Type: Spontaneous
  Country: GB (occurrence: GB)
  Receive Date: 20210624
  Receipt Date: 20210624
  Transmission Date: 20210717
  Serious: Yes (Hospitalization)
  Sender: FDA-Public Use
  Company Number: GB-JNJFOC-20191215586

PATIENT
  Sex: Male

DRUGS (6)
  1. TRAMADOL HYDROCHLORIDE. [Suspect]
     Active Substance: TRAMADOL HYDROCHLORIDE
     Indication: PRODUCT USED FOR UNKNOWN INDICATION
     Dosage: 50 MILLIGRAM, 1/DAY
     Route: 065
  2. ALFUZOSIN HYDROCHLORIDE. [Suspect]
     Active Substance: ALFUZOSIN HYDROCHLORIDE
     Indication: PRODUCT USED FOR UNKNOWN INDICATION
     Dosage: 10 MILLIGRAM, 1/DAY
     Route: 065
  3. DUTASTERIDE. [Suspect]
     Active Substance: DUTASTERIDE
     Indication: PRODUCT USED FOR UNKNOWN INDICATION
     Dosage: 500 MICROGRAM, 1/DAY
     Route: 065
  4. BISOPROLOL FUMARATE. [Suspect]
     Active Substance: BISOPROLOL FUMARATE
     Indication: PRODUCT USED FOR UNKNOWN INDICATION
     Dosage: 2.5 MILLIGRAM, 1/DAY
     Route: 065
  5. LANSOPRAZOLE. [Suspect]
     Active Substance: LANSOPRAZOLE
     Indication: PRODUCT USED FOR UNKNOWN INDICATION
     Dosage: 15 MILLIGRAM, 1/DAY
     Route: 065
  6. TRAMADOL HYDROCHLORIDE. [Suspect]
     Active Substance: TRAMADOL HYDROCHLORIDE
     Dosage: 100 MILLIGRAM, 1/DAY
     Route: 065

REACTIONS (7)
  - Wrong patient received product [Unknown]
  - Product administration error [Unknown]
  - Malaise [Unknown]
  - Product dispensing error [Unknown]
  - Drug dispensed to wrong patient [Unknown]
  - Wrong product administered [Unknown]
  - Product storage error [Unknown]
